FAERS Safety Report 22117422 (Version 3)
Quarter: 2023Q2

REPORT INFORMATION
  Report Type: Report from Study
  Country: US (occurrence: US)
  Receive Date: 20230321
  Receipt Date: 20230628
  Transmission Date: 20230721
  Serious: Yes (Other)
  Sender: FDA-Public Use
  Company Number: US-ABBVIE-4284094

PATIENT
  Age: 50 Year
  Sex: Female

DRUGS (3)
  1. HUMIRA [Suspect]
     Active Substance: ADALIMUMAB
     Indication: Crohn^s disease
     Dosage: FORM STRENGTH: 40 MG, CITRATE FREE
     Route: 058
     Dates: start: 20220827
  2. HUMIRA [Suspect]
     Active Substance: ADALIMUMAB
     Dosage: FORM STRENGTH: 40 MG, CITRATE FREE
     Route: 058
  3. HUMIRA [Suspect]
     Active Substance: ADALIMUMAB
     Dosage: CITRATE FREE?FORM STRENGTH: 40MG
     Route: 058

REACTIONS (6)
  - Large intestinal haemorrhage [Not Recovered/Not Resolved]
  - Knee arthroplasty [Recovered/Resolved]
  - Therapeutic product effect incomplete [Unknown]
  - Rheumatoid arthritis [Recovered/Resolved]
  - Inflammation [Not Recovered/Not Resolved]
  - Arthropathy [Not Recovered/Not Resolved]

NARRATIVE: CASE EVENT DATE: 20221205
